FAERS Safety Report 16609298 (Version 1)
Quarter: 2019Q3

REPORT INFORMATION
  Report Type: Spontaneous
  Country: US (occurrence: US)
  Receive Date: 20190722
  Receipt Date: 20190722
  Transmission Date: 20191004
  Serious: Yes (Death)
  Sender: FDA-Public Use
  Company Number: US-CELGENEUS-USA-20190707502

PATIENT
  Age: 77 Year
  Sex: Male
  Weight: 65 kg

DRUGS (2)
  1. REVLIMID [Suspect]
     Active Substance: LENALIDOMIDE
     Indication: PLASMA CELL MYELOMA
     Dosage: 25 MILLIGRAM
     Route: 048
     Dates: start: 20180601
  2. REVLIMID [Suspect]
     Active Substance: LENALIDOMIDE
     Indication: BLADDER NEOPLASM
     Dosage: 25 MILLIGRAM
     Route: 048
     Dates: start: 201111

REACTIONS (1)
  - Death [Fatal]

NARRATIVE: CASE EVENT DATE: 20190711
